FAERS Safety Report 6034780-9 (Version None)
Quarter: 2009Q1

REPORT INFORMATION
  Report Type: 
  Country: None (occurrence: None)
  Receive Date: 20090112
  Receipt Date: 20090105
  Transmission Date: 20090719
  Serious: Yes (Hospitalization)
  Sender: FDA-Public Use
  Company Number: US-ELI_LILLY_AND_COMPANY-US200901000339

PATIENT
  Sex: Female

DRUGS (13)
  1. FORTEO [Suspect]
     Dosage: 20 UG, DAILY (1/D)
     Dates: start: 20081001
  2. DOCUSATE SODIUM [Concomitant]
  3. LITHIUM [Concomitant]
  4. SYNTHROID [Concomitant]
  5. DITROPAN XL [Concomitant]
  6. DEPAKOTE ER [Concomitant]
  7. PREMPRO [Concomitant]
  8. TRIAMTERENE AND HYDROCHLOROTHIAZIDE [Concomitant]
  9. PROPRANOLOL [Concomitant]
  10. RANITIDINE [Concomitant]
  11. MULTI-VITAMIN [Concomitant]
  12. LOVAZA [Concomitant]
  13. VITAMIN E [Concomitant]

REACTIONS (1)
  - APPENDICECTOMY [None]
